FAERS Safety Report 6679236-5 (Version None)
Quarter: 2010Q2

REPORT INFORMATION
  Report Type: 
  Country: None (occurrence: None)
  Receive Date: 20100413
  Receipt Date: 20100406
  Transmission Date: 20101027
  Serious: Yes (Hospitalization, Other)
  Sender: FDA-Public Use
  Company Number: FR-BAYER-201021086GPV

PATIENT
  Age: 4 Year
  Sex: Female
  Weight: 17 kg

DRUGS (4)
  1. CIPROFLOXACIN HCL [Suspect]
     Indication: DRUG USE FOR UNKNOWN INDICATION
     Dosage: 170MG, 3 DAYS
     Route: 042
     Dates: start: 20100317
  2. TEGELINE [Suspect]
     Indication: DRUG USE FOR UNKNOWN INDICATION
     Route: 042
     Dates: start: 20100318, end: 20100318
  3. IMIPENEM AND CILASTATIN [Suspect]
     Indication: DRUG USE FOR UNKNOWN INDICATION
     Route: 042
     Dates: start: 20100316, end: 20100323
  4. AMBISOME [Suspect]
     Indication: DRUG USE FOR UNKNOWN INDICATION
     Route: 065
     Dates: start: 20100316

REACTIONS (3)
  - DISTURBANCE IN ATTENTION [None]
  - ELECTROENCEPHALOGRAM ABNORMAL [None]
  - GRAND MAL CONVULSION [None]
